FAERS Safety Report 9180951 (Version 4)
Quarter: 2013Q2

REPORT INFORMATION
  Report Type: Report from Study
  Country: AU (occurrence: AU)
  Receive Date: 20130322
  Receipt Date: 20130520
  Transmission Date: 20140414
  Serious: Yes (Hospitalization, Other)
  Sender: FDA-Public Use
  Company Number: PHHY2013AU027378

PATIENT
  Age: 62 Year
  Sex: Female
  Weight: 54 kg

DRUGS (19)
  1. ACLASTA [Suspect]
     Indication: OSTEOPOROSIS
     Dosage: UNK
     Route: 042
  2. ACLASTA [Suspect]
     Dosage: UNK
     Route: 042
  3. ACLASTA [Suspect]
     Dosage: 5 MG/ 100 ML ANNUAL
     Route: 042
     Dates: start: 20120216
  4. ACLASTA [Suspect]
     Dosage: 5 MG/ 100 ML ANNUAL
     Route: 042
     Dates: start: 20130402
  5. ATACAND [Concomitant]
     Dosage: 1 DF, QD
  6. CALTRATE [Concomitant]
     Dosage: 1 DF, BID
  7. CELEBREX [Concomitant]
     Dosage: 1 DF, QD (WITH MEALS)
  8. CEPHALEXIN [Concomitant]
     Dosage: 1 DF, TID
  9. DIAMICRON MR [Concomitant]
     Dosage: 1 DF, IN THE MORNING
  10. EFEXOR XR [Concomitant]
     Dosage: 1 DF, BID
  11. FUCIDIN [Concomitant]
     Dosage: 4 DF, IN THE MORNING
  12. HYSONE TABLETS [Concomitant]
     Dosage: 20 MG, 1DF IN THE MORNING
  13. HYSONE TABLETS [Concomitant]
     Dosage: 4 MG, (8MG AT 8AM, 8MG AT 12PM, 4MG AT 5PM)
  14. LYRICA [Concomitant]
     Dosage: 1 DF, BID
  15. NORSPAN-M [Concomitant]
     Dosage: 1 DF, ONCE A WEEK
  16. OSTELIN VITAMIN D [Concomitant]
     Dosage: 1 DF, QD
  17. PANADOL OSTEO [Concomitant]
     Dosage: 2 DF, TID
  18. RIFAMPICIN [Concomitant]
     Dosage: 1 DF, 1 IN THE MORNING ON EMPTY STOMACH 1/2 HR BEFORE FOOD
  19. TEMAZEPAM [Concomitant]
     Dosage: 0.5 DF, PRN (BEFORE BED)

REACTIONS (3)
  - Osteomyelitis [Recovering/Resolving]
  - Upper limb fracture [Recovering/Resolving]
  - Sternal fracture [Recovered/Resolved]
